FAERS Safety Report 5683340-8 (Version None)
Quarter: 2008Q1

REPORT INFORMATION
  Report Type: 
  Country: None (occurrence: None)
  Receive Date: 20080327
  Receipt Date: 20080315
  Transmission Date: 20080703
  Serious: Yes (Other)
  Sender: FDA-Public Use
  Company Number: RU-PFIZER INC-2008024865

PATIENT
  Sex: Male

DRUGS (1)
  1. ZMAX [Suspect]
     Indication: SINUSITIS
     Route: 048

REACTIONS (2)
  - DIARRHOEA [None]
  - GASTROINTESTINAL HAEMORRHAGE [None]
